FAERS Safety Report 7210157-5 (Version None)
Quarter: 2011Q1

REPORT INFORMATION
  Report Type: 
  Country: None (occurrence: None)
  Receive Date: 20110105
  Receipt Date: 20101230
  Transmission Date: 20110831
  Serious: Yes (Other)
  Sender: FDA-Public Use
  Company Number: JP-BRISTOL-MYERS SQUIBB COMPANY-15463961

PATIENT
  Age: 15 Year
  Sex: Female

DRUGS (9)
  1. CYCLOPHOSPHAMIDE [Suspect]
  2. ETOPOSIDE [Suspect]
  3. FLUDARABINE PHOSPHATE [Suspect]
  4. PREDNISOLONE [Suspect]
     Indication: ACUTE LYMPHOCYTIC LEUKAEMIA
  5. METHOTREXATE [Suspect]
  6. MELPHALAN [Suspect]
  7. DASATINIB [Suspect]
     Indication: ACUTE LYMPHOCYTIC LEUKAEMIA
  8. CYCLOSPORINE [Suspect]
  9. CYTARABINE [Suspect]

REACTIONS (7)
  - CYTOMEGALOVIRUS TEST POSITIVE [None]
  - MYALGIA [None]
  - GRAFT VERSUS HOST DISEASE [None]
  - HEADACHE [None]
  - PYREXIA [None]
  - NAUSEA [None]
  - RASH [None]
